FAERS Safety Report 4970322-4 (Version None)
Quarter: 2006Q1

REPORT INFORMATION
  Report Type: 
  Country: None (occurrence: None)
  Receive Date: 20060331
  Receipt Date: 20051219
  Transmission Date: 20060701
  Serious: Yes (Other)
  Sender: FDA-Public Use
  Company Number: 2005BH003713

PATIENT
  Age: 46 Year
  Sex: Female
  Weight: 52 kg

DRUGS (3)
  1. ENDOBULIN/IVEEGAM S/D (IMMUNOGLOBULIN HUMAN NORMAL) [Suspect]
     Indication: IMMUNODEFICIENCY
     Dosage: 200 + 100 ML; AS NEEDED; IV
     Route: 042
     Dates: start: 20051207, end: 20051207
  2. ENDOBULIN/IVEEGAM S/D (IMMUNOGLOBULIN HUMAN NORMAL) [Suspect]
     Indication: IMMUNODEFICIENCY
     Dosage: 200 + 100 ML; AS NEEDED; IV
     Route: 042
     Dates: start: 20060301, end: 20060301
  3. ENDOBULIN/IVEEGAM S/D (IMMUNOGLOBULIN HUMAN NORMAL) [Suspect]

REACTIONS (6)
  - BACK PAIN [None]
  - BONE PAIN [None]
  - CHEST PAIN [None]
  - INFUSION RELATED REACTION [None]
  - MYALGIA [None]
  - PELVIC PAIN [None]
